FAERS Safety Report 4434378-X (Version None)
Quarter: 2004Q3

REPORT INFORMATION
  Report Type: 
  Country: None (occurrence: None)
  Receive Date: 20040825
  Receipt Date: 20040812
  Transmission Date: 20050211
  Serious: Yes (Hospitalization)
  Sender: FDA-Public Use
  Company Number: 208430

PATIENT
  Age: 46 Year
  Sex: Male

DRUGS (6)
  1. RITUXAN [Suspect]
     Dates: start: 20040812
  2. CYCLOPHOSPHAMIDE [Concomitant]
  3. HYDROXYDAUNORUBICIN (DOXORUBICIN HYDROCHLORIDE, DOXORUBICIN) [Concomitant]
  4. ONCOVIN [Concomitant]
  5. PREDNISONE [Concomitant]
  6. SOLU-MEDROL [Concomitant]

REACTIONS (1)
  - EYE SWELLING [None]
